FAERS Safety Report 5903581-1 (Version None)
Quarter: 2008Q3

REPORT INFORMATION
  Report Type: 
  Country: None (occurrence: None)
  Receive Date: 20080930
  Receipt Date: 20080918
  Transmission Date: 20090109
  Serious: Yes (Hospitalization, Other)
  Sender: FDA-Public Use
  Company Number: DE-PFIZER INC-2008079170

PATIENT
  Age: 52 Year
  Sex: Female

DRUGS (2)
  1. AROMASIN [Suspect]
     Route: 048
     Dates: start: 20060701
  2. LEVOTHYROXINE SODIUM [Concomitant]

REACTIONS (2)
  - DELUSION [None]
  - HALLUCINATION, AUDITORY [None]
